FAERS Safety Report 6258332-0 (Version None)
Quarter: 2009Q3

REPORT INFORMATION
  Report Type: 
  Country: None (occurrence: None)
  Receive Date: 20090707
  Receipt Date: 20090622
  Transmission Date: 20100115
  Serious: Yes (Hospitalization)
  Sender: FDA-Public Use
  Company Number: PHHY2009FR25881

PATIENT
  Age: 89 Year
  Sex: Female

DRUGS (2)
  1. TAREG [Suspect]
     Dosage: 1 DF, QD
     Route: 048
     Dates: end: 20090101
  2. ALDALIX [Suspect]
     Dosage: 1 DF, QD
     Route: 048
     Dates: end: 20090101

REACTIONS (5)
  - CHEST PAIN [None]
  - HYPERKALAEMIA [None]
  - INTERNATIONAL NORMALISED RATIO INCREASED [None]
  - LUNG INFECTION [None]
  - RENAL FAILURE [None]
